FAERS Safety Report 5600905-X (Version None)
Quarter: 2008Q1

REPORT INFORMATION
  Report Type: 
  Country: None (occurrence: None)
  Receive Date: 20080124
  Receipt Date: 20080117
  Transmission Date: 20080703
  Serious: Yes (Other)
  Sender: FDA-Public Use
  Company Number: SE-JNJFOC-20080104740

PATIENT
  Age: 18 Year
  Sex: Female

DRUGS (4)
  1. REMICADE [Suspect]
     Route: 042
  2. REMICADE [Suspect]
     Indication: JUVENILE ARTHRITIS
     Route: 042
  3. FOLACIN [Concomitant]
  4. METHOTREXATE [Concomitant]

REACTIONS (5)
  - COLD SWEAT [None]
  - HYPOAESTHESIA [None]
  - INFUSION RELATED REACTION [None]
  - PRURITUS [None]
  - SENSORY DISTURBANCE [None]
